FAERS Safety Report 7016066-9 (Version None)
Quarter: 2010Q3

REPORT INFORMATION
  Report Type: 
  Country: None (occurrence: None)
  Receive Date: 20100923
  Receipt Date: 20100909
  Transmission Date: 20110219
  Serious: Yes (Hospitalization)
  Sender: FDA-Public Use
  Company Number: 014573

PATIENT
  Sex: Female
  Weight: 53.1 kg

DRUGS (7)
  1. CIMZIA [Suspect]
     Indication: RHEUMATOID ARTHRITIS
     Dosage: (200 MG 1X/2 WEEKS SUBCUTANEOUS)
     Route: 058
     Dates: start: 20100616, end: 20100825
  2. FERROUS GLUCONATE [Concomitant]
  3. ACTONEL [Concomitant]
  4. NAPROXEN [Concomitant]
  5. FENTANYL [Concomitant]
  6. XYLOCAINE [Concomitant]
  7. RALOXIFENE HCL [Concomitant]

REACTIONS (3)
  - CONDITION AGGRAVATED [None]
  - SEPSIS [None]
  - VASCULITIS [None]
